FAERS Safety Report 26129076 (Version 2)
Quarter: 2025Q4

REPORT INFORMATION
  Report Type: Spontaneous
  Country: EU (occurrence: EU)
  Receive Date: 20251208
  Receipt Date: 20251222
  Transmission Date: 20260117
  Serious: Yes (Life-Threatening, Hospitalization, Other)
  Sender: BAXTER
  Company Number: None

PATIENT
  Age: 24 Year
  Sex: Female

DRUGS (15)
  1. KETOROLAC [Suspect]
     Active Substance: KETOROLAC TROMETHAMINE
     Indication: Pain
     Dosage: 30 MG
     Route: 030
  2. DIPYRONE [Suspect]
     Active Substance: DIPYRONE
     Indication: Pain
     Dosage: 1 G
     Route: 030
  3. DIANE (CYPROTERONE ACETATE\ETHINYL ESTRADIOL) [Suspect]
     Active Substance: CYPROTERONE ACETATE\ETHINYL ESTRADIOL
     Dosage: UNK
     Route: 065
  4. DICLOFENAC [Suspect]
     Active Substance: DICLOFENAC
     Indication: Pain
     Dosage: 50 MG, TID (3 TIMES DAILY)
     Route: 065
  5. LEVONORGESTREL [Suspect]
     Active Substance: LEVONORGESTREL
     Dosage: UNK
     Route: 015
  6. IBUPROFEN [Suspect]
     Active Substance: IBUPROFEN
     Indication: Arthralgia
     Dosage: UNK
     Route: 065
  7. NIMESULIDE [Suspect]
     Active Substance: NIMESULIDE
     Indication: Pain
     Dosage: UNK
     Route: 065
  8. OMEPRAZOLE [Suspect]
     Active Substance: OMEPRAZOLE
     Indication: Prophylaxis
     Dosage: 20 MG, BID
     Route: 065
  9. VERAPAMIL [Suspect]
     Active Substance: VERAPAMIL HYDROCHLORIDE
     Dosage: 120 MG, BID (TWICE DAILY)
     Route: 065
  10. DROSPIRENONE [Suspect]
     Active Substance: DROSPIRENONE
     Dosage: UNK
     Route: 065
  11. APIXABAN [Concomitant]
     Active Substance: APIXABAN
     Dosage: 500 MG, BID (TWICE DAILY FOR UP TO 6 MONTHS)
     Route: 065
  12. CEFUROXIME [Concomitant]
     Active Substance: CEFUROXIME
     Dosage: 500 MG, BID (TWICE DAILY FOR 5 DAYS)
     Route: 065
  13. NADROPARIN CALCIUM [Concomitant]
     Active Substance: NADROPARIN CALCIUM
     Dosage: 0.6 MG, BID (TWICE DAILY)
     Route: 058
  14. METOPROLOL [Concomitant]
     Active Substance: METOPROLOL
     Dosage: 25 MG
     Route: 065
  15. SODIUM CHLORIDE [Concomitant]
     Active Substance: SODIUM CHLORIDE
     Dosage: 500 ML
     Route: 042

REACTIONS (3)
  - Pulmonary embolism [Unknown]
  - Oesophagitis [Unknown]
  - Off label use [Unknown]
